FAERS Safety Report 23169922 (Version 3)
Quarter: 2023Q4

REPORT INFORMATION
  Report Type: Report from Study
  Country: MX (occurrence: MX)
  Receive Date: 20231110
  Receipt Date: 20231213
  Transmission Date: 20240110
  Serious: Yes (Other)
  Sender: FDA-Public Use
  Company Number: MX-002147023-NVSC2023MX238286

PATIENT
  Age: 40 Year
  Sex: Male
  Weight: 82 kg

DRUGS (3)
  1. GILENYA [Suspect]
     Active Substance: FINGOLIMOD HYDROCHLORIDE
     Indication: Multiple sclerosis
     Dosage: 0.5 MG, QD, (BY MOUTH)
     Route: 048
     Dates: start: 20210823
  2. DICLOFENAC [Concomitant]
     Active Substance: DICLOFENAC
     Indication: Pain prophylaxis
     Dosage: 100 MG, Q12H, FOR 7 DAYS
     Route: 048
     Dates: start: 20231113
  3. CIPROFLOXACIN [Concomitant]
     Active Substance: CIPROFLOXACIN
     Indication: Infection prophylaxis
     Dosage: 250 MG, Q12H
     Route: 048
     Dates: start: 20231113

REACTIONS (9)
  - Multiple sclerosis [Not Recovered/Not Resolved]
  - Muscular weakness [Not Recovered/Not Resolved]
  - Foot fracture [Recovered/Resolved with Sequelae]
  - Multiple sclerosis relapse [Recovering/Resolving]
  - Hypoaesthesia [Recovering/Resolving]
  - Headache [Recovering/Resolving]
  - Fall [Recovered/Resolved]
  - Dry throat [Not Recovered/Not Resolved]
  - Cough [Not Recovered/Not Resolved]

NARRATIVE: CASE EVENT DATE: 20230201
